FAERS Safety Report 4330428-X (Version None)
Quarter: 2004Q2

REPORT INFORMATION
  Report Type: 
  Country: None (occurrence: None)
  Receive Date: 20040402
  Receipt Date: 20030807
  Transmission Date: 20050107
  Serious: No
  Sender: FDA-Public Use
  Company Number: US-BRISTOL-MYERS SQUIBB COMPANY-12373692

PATIENT
  Age: 60 Year
  Sex: Male

DRUGS (1)
  1. HYDREA [Suspect]
     Route: 048
     Dates: start: 20010101

REACTIONS (1)
  - RASH [None]
